FAERS Safety Report 4471641-0 (Version None)
Quarter: 2004Q4

REPORT INFORMATION
  Report Type: 
  Country: None (occurrence: None)
  Receive Date: 20041012
  Receipt Date: 20040929
  Transmission Date: 20050328
  Serious: Yes (Hospitalization)
  Sender: FDA-Public Use
  Company Number: 200413620FR

PATIENT
  Age: 81 Year
  Sex: Female
  Weight: 100 kg

DRUGS (9)
  1. LASILIX 40 MG [Suspect]
     Route: 048
     Dates: start: 20011201
  2. TRIATEC 5 MG [Concomitant]
     Route: 048
  3. SINTROM [Concomitant]
     Route: 048
  4. INSULATARD NOVOLET [Concomitant]
     Dosage: DOSE: 40-0-30
     Route: 058
  5. NITRIDERM TTS [Concomitant]
     Route: 003
  6. DIGOXIN [Concomitant]
  7. DIAMICRON [Concomitant]
     Dosage: DOSE: 80-80-0
     Route: 048
  8. ZANIDIP [Concomitant]
     Dosage: DOSE: 1-O-O-; DOSE UNIT: UNITS
     Route: 048
  9. ZOPICLONE RATIOPHARM [Concomitant]

REACTIONS (13)
  - ABDOMINAL PAIN [None]
  - COGNITIVE DISORDER [None]
  - CONFUSIONAL STATE [None]
  - HAEMATOMA [None]
  - HAEMATURIA [None]
  - HYPONATRAEMIA [None]
  - INTERNATIONAL NORMALISED RATIO INCREASED [None]
  - MEMORY IMPAIRMENT [None]
  - OLIGURIA [None]
  - PELVIC PAIN [None]
  - PROTHROMBIN TIME PROLONGED [None]
  - TREATMENT NONCOMPLIANCE [None]
  - VOMITING [None]
